FAERS Safety Report 5062704-X (Version None)
Quarter: 2006Q3

REPORT INFORMATION
  Report Type: 
  Country: None (occurrence: None)
  Receive Date: 20060703
  Receipt Date: 20051025
  Transmission Date: 20061208
  Serious: No
  Sender: FDA-Public Use
  Company Number: 2005S1010557

PATIENT
  Age: 41 Year
  Sex: Female

DRUGS (4)
  1. CLOZAPINE [Suspect]
     Indication: MANIA
     Dosage: 300 MG; QD; PO
     Route: 048
  2. CLOZAPINE [Suspect]
     Indication: PARANOIA
     Dosage: 300 MG; QD; PO
     Route: 048
  3. CLOZAPINE [Suspect]
     Indication: SCHIZOPHRENIA
     Dosage: 300 MG; QD; PO
     Route: 048
  4. QUETIAPINE FUMARATE [Concomitant]

REACTIONS (2)
  - GRANULOCYTOPENIA [None]
  - LEUKOPENIA [None]
